FAERS Safety Report 16927626 (Version 1)
Quarter: 2019Q4

REPORT INFORMATION
  Report Type: Spontaneous
  Country: JP (occurrence: JP)
  Receive Date: 20191016
  Receipt Date: 20191016
  Transmission Date: 20200122
  Serious: Yes (Other)
  Sender: FDA-Public Use
  Company Number: NVSC2019JP001308

PATIENT
  Sex: Female

DRUGS (2)
  1. MEDROXYPROGESTERONE ACETATE. [Suspect]
     Active Substance: MEDROXYPROGESTERONE ACETATE
     Indication: ENDOMETRIAL CANCER
     Dosage: UNK
     Route: 065
  2. MEDROXYPROGESTERONE ACETATE. [Suspect]
     Active Substance: MEDROXYPROGESTERONE ACETATE
     Indication: ENDOMETRIAL HYPERPLASIA

REACTIONS (2)
  - Placenta accreta [Unknown]
  - Maternal exposure during pregnancy [Unknown]
